FAERS Safety Report 8437526-X (Version None)
Quarter: 2012Q2

REPORT INFORMATION
  Report Type: 
  Country: None (occurrence: None)
  Receive Date: 20120614
  Receipt Date: 20120424
  Transmission Date: 20120825
  Serious: No
  Sender: FDA-Public Use
  Company Number: US-AMGEN-USASP2012025803

PATIENT
  Sex: Female

DRUGS (1)
  1. XGEVA [Suspect]
     Indication: NEOPLASM
     Dosage: UNK

REACTIONS (1)
  - ARTHRALGIA [None]
